FAERS Safety Report 8101778-6 (Version None)
Quarter: 2012Q1

REPORT INFORMATION
  Report Type: 
  Country: None (occurrence: None)
  Receive Date: 20120131
  Receipt Date: 20120118
  Transmission Date: 20120608
  Serious: Yes (Other)
  Sender: FDA-Public Use
  Company Number: PHHY2012US007835

PATIENT
  Age: 63 Year
  Sex: Male

DRUGS (10)
  1. ITRACONAZOLE [Concomitant]
     Dosage: UNK UKN, UNK
  2. SULFAMETHOXAZOLE AND TRIMETHOPRIM [Concomitant]
     Dosage: UNK UKN, UNK
  3. METOPROLOL TARTRATE [Concomitant]
     Dosage: UNK UKN, UNK
  4. EZETIMIBE [Concomitant]
     Dosage: 10 MG, DAILY
  5. CYCLOSPORINE [Suspect]
     Indication: LUNG TRANSPLANT
     Dosage: UNK UKN, UNK
  6. PREDNISONE TAB [Concomitant]
     Indication: LUNG TRANSPLANT
     Dosage: 5 MG, DAILY
  7. OMEPRAZOLE [Concomitant]
     Dosage: UNK UKN, UNK
  8. IPRATROPIUM BROMIDE [Concomitant]
     Dosage: UNK UKN, UNK
  9. ARFORMOTEROL TARTRATE [Concomitant]
     Dosage: UNK UKN, UNK
  10. AZATHIOPRINE [Concomitant]
     Indication: LUNG TRANSPLANT
     Dosage: 100 MG, DAILY

REACTIONS (7)
  - BRONCHIECTASIS [None]
  - PSEUDOMONAS INFECTION [None]
  - RENAL FAILURE ACUTE [None]
  - COUGH [None]
  - HYPOVOLAEMIA [None]
  - BRONCHITIS [None]
  - HERPES ZOSTER [None]
